FAERS Safety Report 15976439 (Version 2)
Quarter: 2019Q2

REPORT INFORMATION
  Report Type: Spontaneous
  Country: US (occurrence: US)
  Receive Date: 20190218
  Receipt Date: 20190617
  Transmission Date: 20190711
  Serious: No
  Sender: FDA-Public Use
  Company Number: US-BIOGEN-2019BI00697362

PATIENT
  Sex: Female

DRUGS (8)
  1. TYSABRI [Suspect]
     Active Substance: NATALIZUMAB
     Indication: MULTIPLE SCLEROSIS
     Route: 050
     Dates: start: 20180531
  2. TRIPLEPTAL [Concomitant]
     Route: 050
  3. HYDROXYZINE [Concomitant]
     Active Substance: HYDROXYZINE HYDROCHLORIDE
     Route: 050
  4. DOXYCYCLINE. [Concomitant]
     Active Substance: DOXYCYCLINE
     Route: 050
  5. TOPIRAMATE. [Concomitant]
     Active Substance: TOPIRAMATE
     Route: 050
  6. NEXPLANON [Concomitant]
     Active Substance: ETONOGESTREL
     Route: 050
  7. VENLOFAXIN [Concomitant]
     Route: 050
  8. BACLOFEN. [Concomitant]
     Active Substance: BACLOFEN
     Route: 050

REACTIONS (5)
  - Fatigue [Unknown]
  - Asthenia [Unknown]
  - Alopecia [Unknown]
  - Nausea [Unknown]
  - Migraine [Unknown]
